FAERS Safety Report 15083179 (Version 3)
Quarter: 2018Q4

REPORT INFORMATION
  Report Type: Spontaneous
  Country: US (occurrence: US)
  Receive Date: 20180628
  Receipt Date: 20181228
  Transmission Date: 20190204
  Serious: No
  Sender: FDA-Public Use
  Company Number: US-INDIVIOR LIMITED-INDV-111312-2018

PATIENT
  Age: 34 Year
  Sex: Female

DRUGS (1)
  1. SUBLOCADE [Suspect]
     Active Substance: BUPRENORPHINE
     Indication: DRUG USE DISORDER
     Dosage: 300 MG, ONE TIME DOSE
     Route: 058
     Dates: start: 20180518, end: 20180518

REACTIONS (5)
  - Headache [Recovered/Resolved]
  - Malaise [Not Recovered/Not Resolved]
  - Oedema peripheral [Recovered/Resolved]
  - Incorrect dose administered [Recovered/Resolved]
  - Injection site oedema [Recovered/Resolved]

NARRATIVE: CASE EVENT DATE: 2018
